FAERS Safety Report 4365101-5 (Version None)
Quarter: 2004Q2

REPORT INFORMATION
  Report Type: 
  Country: None (occurrence: None)
  Receive Date: 20040520
  Receipt Date: 20040504
  Transmission Date: 20050107
  Serious: Yes (Hospitalization)
  Sender: FDA-Public Use
  Company Number: 2004-FF-00292FF

PATIENT
  Age: 30 Month
  Sex: Female

DRUGS (4)
  1. VIRAMUNE (NEVIRAPINE) (UNK) [Suspect]
     Indication: HIV INFECTION
     Dosage: IU
     Route: 015
  2. VIRACEPT [Concomitant]
  3. ZIAGEN [Concomitant]
  4. ZIDOVUDINE [Concomitant]

REACTIONS (7)
  - ANAEMIA [None]
  - BRAIN NEOPLASM MALIGNANT [None]
  - CAESAREAN SECTION [None]
  - EPENDYMOMA [None]
  - MATERNAL DRUGS AFFECTING FOETUS [None]
  - NEOPLASM [None]
  - NEUTROPENIA [None]
